FAERS Safety Report 6694776-0 (Version None)
Quarter: 2010Q2

REPORT INFORMATION
  Report Type: 
  Country: None (occurrence: None)
  Receive Date: 20100423
  Receipt Date: 20100419
  Transmission Date: 20101027
  Serious: Yes (Hospitalization)
  Sender: FDA-Public Use
  Company Number: B0649135A

PATIENT
  Sex: Female
  Weight: 55 kg

DRUGS (1)
  1. PAROXETINE HCL [Suspect]
     Dosage: 20MG PER DAY
     Route: 065
     Dates: start: 20100220

REACTIONS (7)
  - ABDOMINAL DISCOMFORT [None]
  - CONVULSION [None]
  - DISCOMFORT [None]
  - NAUSEA [None]
  - PALPITATIONS [None]
  - RESTLESS LEGS SYNDROME [None]
  - RESTLESSNESS [None]
